FAERS Safety Report 4556749-3 (Version None)
Quarter: 2005Q1

REPORT INFORMATION
  Report Type: 
  Country: None (occurrence: None)
  Receive Date: 20050120
  Receipt Date: 20050109
  Transmission Date: 20050727
  Serious: Yes (Hospitalization)
  Sender: FDA-Public Use
  Company Number: 200510329GDDC

PATIENT
  Sex: Male

DRUGS (1)
  1. RILUTEK [Suspect]
     Dates: start: 20041101

REACTIONS (2)
  - LOWER RESPIRATORY TRACT INFECTION [None]
  - NAUSEA [None]
